FAERS Safety Report 12463773 (Version 1)
Quarter: 2016Q2

REPORT INFORMATION
  Report Type: Spontaneous
  Country: US (occurrence: US)
  Receive Date: 20160614
  Receipt Date: 20160614
  Transmission Date: 20160815
  Serious: Yes (Other)
  Sender: FDA-Public Use
  Company Number: US-TEVA-668440USA

PATIENT
  Age: 46 Year
  Sex: Female

DRUGS (1)
  1. TAMOXIFEN [Suspect]
     Active Substance: TAMOXIFEN
     Indication: BREAST CANCER STAGE II
     Route: 065

REACTIONS (9)
  - Decreased appetite [Unknown]
  - Anhedonia [Unknown]
  - Depression [Unknown]
  - Insomnia [Unknown]
  - Dyspareunia [Unknown]
  - Atrophic vulvovaginitis [Unknown]
  - Hot flush [Unknown]
  - Disturbance in attention [Unknown]
  - Loss of libido [Unknown]
